FAERS Safety Report 16932993 (Version 1)
Quarter: 2019Q4

REPORT INFORMATION
  Report Type: Report from Study
  Country: None (occurrence: CO)
  Receive Date: 20191018
  Receipt Date: 20191018
  Transmission Date: 20200122
  Serious: Yes (Other)
  Sender: FDA-Public Use
  Company Number: CO-ABBVIE-19K-036-2968532-00

PATIENT
  Age: 55 Year
  Sex: Female
  Weight: 60 kg

DRUGS (1)
  1. HUMIRA [Suspect]
     Active Substance: ADALIMUMAB
     Indication: COLITIS ULCERATIVE
     Route: 058
     Dates: start: 20170517, end: 20190926

REACTIONS (3)
  - Nasal septum deviation [Recovering/Resolving]
  - Respiratory distress [Recovering/Resolving]
  - Skeletal injury [Recovering/Resolving]

NARRATIVE: CASE EVENT DATE: 20191012
